FAERS Safety Report 5847591-1 (Version None)
Quarter: 2008Q3

REPORT INFORMATION
  Report Type: 
  Country: None (occurrence: None)
  Receive Date: 20080818
  Receipt Date: 20080805
  Transmission Date: 20090109
  Serious: Yes (Other)
  Sender: FDA-Public Use
  Company Number: JP-SP-2008-01026

PATIENT
  Age: 64 Year
  Sex: Male

DRUGS (3)
  1. IMMUCYST [Suspect]
     Indication: BLADDER CANCER
     Route: 043
     Dates: start: 20071016, end: 20071211
  2. IMMUCYST [Suspect]
     Route: 043
     Dates: start: 20071016, end: 20071211
  3. IMMUCYST [Suspect]
     Route: 043
     Dates: start: 20071016, end: 20071211

REACTIONS (6)
  - INCORRECT DOSE ADMINISTERED [None]
  - PYURIA [None]
  - TUBERCULOSIS BLADDER [None]
  - TUBERCULOSIS TEST POSITIVE [None]
  - URINARY TRACT INFECTION [None]
  - URINE ABNORMALITY [None]
